FAERS Safety Report 25388982 (Version 1)
Quarter: 2025Q2

REPORT INFORMATION
  Report Type: Spontaneous
  Country: US (occurrence: US)
  Receive Date: 20250603
  Receipt Date: 20250603
  Transmission Date: 20250717
  Serious: Yes (Other)
  Sender: SANOFI AVENTIS
  Company Number: US-COSETTE-CP2025US000525

PATIENT
  Age: 72 Year
  Sex: Female
  Weight: 56.7 kg

DRUGS (6)
  1. AMBIEN [Suspect]
     Active Substance: ZOLPIDEM TARTRATE
     Indication: Sleep disorder
     Route: 048
     Dates: start: 20250313, end: 202503
  2. FAMOTIDINE [Suspect]
     Active Substance: FAMOTIDINE
     Indication: Gastritis
     Route: 048
     Dates: start: 202503, end: 202503
  3. MAGNESIUM GLYCINATE [Suspect]
     Active Substance: MAGNESIUM GLYCINATE
     Indication: Sleep disorder
     Dosage: 240 MG, QD
     Route: 048
     Dates: start: 20250226, end: 20250328
  4. MAGNESIUM GLYCINATE [Suspect]
     Active Substance: MAGNESIUM GLYCINATE
     Indication: Arthralgia
     Route: 065
  5. TYLENOL [Concomitant]
     Active Substance: ACETAMINOPHEN
     Indication: Pain
     Route: 065
  6. MINERALS\VITAMINS [Concomitant]
     Active Substance: MINERALS\VITAMINS
     Indication: Eye disorder
     Route: 065

REACTIONS (6)
  - Loss of consciousness [Recovering/Resolving]
  - Accident [Recovering/Resolving]
  - Syncope [Recovering/Resolving]
  - Bone pain [Recovering/Resolving]
  - Gait disturbance [Recovering/Resolving]
  - Dizziness [Recovering/Resolving]

NARRATIVE: CASE EVENT DATE: 20250314
